FAERS Safety Report 10911962 (Version 1)
Quarter: 2015Q1

REPORT INFORMATION
  Report Type: Spontaneous
  Country: US (occurrence: None)
  Receive Date: 20150310
  Receipt Date: 20150310
  Transmission Date: 20150721
  Serious: Yes (Hospitalization)
  Sender: FDA-Public Use
  Company Number: None

PATIENT
  Age: 28 Year
  Sex: Male
  Weight: 92 kg

DRUGS (9)
  1. HYDROMORPHONE [Concomitant]
     Active Substance: HYDROMORPHONE
  2. BISACODYL. [Concomitant]
     Active Substance: BISACODYL
  3. CROFAB [Suspect]
     Active Substance: CROTALIDAE POLYVALENT IMMUNE FAB (OVINE)
     Indication: SNAKE BITE
     Dosage: 1 VIAL PRN/AS NEEDED INTRAVENOUS
     Route: 042
     Dates: start: 20140905, end: 20140907
  4. MORPHINE SULFATE. [Concomitant]
     Active Substance: MORPHINE SULFATE
  5. DIPHENHYDRAMINE HCL [Concomitant]
     Active Substance: DIPHENHYDRAMINE HYDROCHLORIDE
  6. DTAP BOOSTER [Concomitant]
  7. APAP [Concomitant]
     Active Substance: ACETAMINOPHEN
  8. ONDANSETRON HCL [Concomitant]
     Active Substance: ONDANSETRON HYDROCHLORIDE
  9. NS [Concomitant]
     Active Substance: SODIUM CHLORIDE

REACTIONS (2)
  - Erythema [None]
  - Swelling [None]

NARRATIVE: CASE EVENT DATE: 20140905
